FAERS Safety Report 9798674 (Version 1)
Quarter: 2014Q1

REPORT INFORMATION
  Report Type: Spontaneous
  Country: US (occurrence: US)
  Receive Date: 20140106
  Receipt Date: 20140106
  Transmission Date: 20141002
  Serious: No
  Sender: FDA-Public Use
  Company Number: US-GILEAD-2010-0029735

PATIENT
  Age: 73 Year
  Sex: Female

DRUGS (17)
  1. LETAIRIS [Suspect]
     Indication: PULMONARY ARTERIAL HYPERTENSION
     Route: 048
     Dates: start: 20100521, end: 20100606
  2. ADCIRCA [Concomitant]
  3. TYVASO [Concomitant]
  4. CELLCEPT [Concomitant]
  5. ZEGERID [Concomitant]
  6. KLONOPIN [Concomitant]
  7. LIPITOR [Concomitant]
  8. AMBIEN [Concomitant]
  9. FLEXERIL [Concomitant]
  10. LORTAB [Concomitant]
  11. VITAMIN D [Concomitant]
  12. PREDNISONE [Concomitant]
  13. SYNTHROID [Concomitant]
  14. FOLIC ACID [Concomitant]
  15. PLAQUENIL [Concomitant]
  16. NEURONTIN [Concomitant]
  17. KADIAN [Concomitant]

REACTIONS (1)
  - Oedema [Recovered/Resolved]
